FAERS Safety Report 8105316-3 (Version None)
Quarter: 2012Q1

REPORT INFORMATION
  Report Type: 
  Country: None (occurrence: None)
  Receive Date: 20120201
  Receipt Date: 20120123
  Transmission Date: 20120608
  Serious: Yes (Hospitalization, Other)
  Sender: FDA-Public Use
  Company Number: PHHO2011JP018906

PATIENT
  Sex: Male

DRUGS (5)
  1. FLAVERIC [Concomitant]
     Dosage: UNK
     Route: 048
     Dates: start: 20110615, end: 20110822
  2. DEPAS [Concomitant]
     Indication: INSOMNIA
     Dosage: 0.5 MG, UNK
     Route: 048
     Dates: start: 20101014
  3. MUCODYNE [Concomitant]
     Indication: BRONCHITIS CHRONIC
     Dosage: UNK
     Route: 048
     Dates: start: 20110615, end: 20110822
  4. LAC B [Concomitant]
     Indication: PROPHYLAXIS AGAINST DIARRHOEA
     Dosage: UNK
     Route: 048
     Dates: start: 20081010
  5. IMATINIB MESYLATE [Suspect]
     Indication: CHRONIC MYELOID LEUKAEMIA
     Dosage: 400 MG, UNK
     Route: 048
     Dates: start: 20080815, end: 20120118

REACTIONS (2)
  - NEOPLASM MALIGNANT [None]
  - B-CELL LYMPHOMA [None]
